FAERS Safety Report 10473343 (Version 3)
Quarter: 2014Q4

REPORT INFORMATION
  Report Type: Spontaneous
  Country: US (occurrence: DE)
  Receive Date: 20140924
  Receipt Date: 20141203
  Transmission Date: 20150528
  Serious: Yes (Hospitalization)
  Sender: FDA-Public Use
  Company Number: DE-FRI-1000070907

PATIENT
  Age: 68 Year
  Sex: Male
  Weight: 61 kg

DRUGS (5)
  1. BRETARIS [Concomitant]
     Dates: start: 201302
  2. FORMATRIS [Concomitant]
  3. ROFLUMILAST [Suspect]
     Active Substance: ROFLUMILAST
     Indication: CHRONIC OBSTRUCTIVE PULMONARY DISEASE
     Dosage: 500 MCG
     Dates: start: 20140904
  4. MULTIPLE CARDIAC MEDICATIONS [Concomitant]
  5. BERODUAL [Concomitant]
     Active Substance: FENOTEROL HYDROBROMIDE\IPRATROPIUM BROMIDE

REACTIONS (5)
  - Dyspnoea [Not Recovered/Not Resolved]
  - Panic attack [Recovered/Resolved]
  - Coronary artery occlusion [Recovered/Resolved]
  - Chest pain [Recovered/Resolved]
  - Malaise [Recovered/Resolved]

NARRATIVE: CASE EVENT DATE: 201409
